FAERS Safety Report 20446885 (Version 2)
Quarter: 2022Q1

REPORT INFORMATION
  Report Type: Spontaneous
  Country: US (occurrence: US)
  Receive Date: 20220208
  Receipt Date: 20220208
  Transmission Date: 20220423
  Serious: No
  Sender: FDA-Public Use
  Company Number: US-HORIZON THERAPEUTICS-HZN-2021-002202

PATIENT
  Sex: Female

DRUGS (1)
  1. ACTIMMUNE [Suspect]
     Active Substance: INTERFERON GAMMA-1B
     Indication: Cutaneous T-cell lymphoma
     Dosage: UNK (UNKNOWN DAILY DOSAGE, 12 VIALS FOR A 28 DAY SUPPLY)
     Route: 065

REACTIONS (1)
  - Off label use [Unknown]
